FAERS Safety Report 23317966 (Version 1)
Quarter: 2023Q4

REPORT INFORMATION
  Report Type: Report from Study
  Country: US (occurrence: US)
  Receive Date: 20231219
  Receipt Date: 20231219
  Transmission Date: 20240110
  Serious: Yes (Congenital Anomaly)
  Sender: FDA-Public Use
  Company Number: US-ABBVIE-5546681

PATIENT

DRUGS (1)
  1. RITONAVIR [Suspect]
     Active Substance: RITONAVIR
     Indication: Maternal exposure timing unspecified
     Route: 064

REACTIONS (2)
  - Congenital renal disorder [Recovered/Resolved]
  - Foetal exposure during pregnancy [Unknown]

NARRATIVE: CASE EVENT DATE: 20231106
